FAERS Safety Report 9838877 (Version 2)
Quarter: 2014Q2

REPORT INFORMATION
  Report Type: Spontaneous
  Country: US (occurrence: US)
  Receive Date: 20140123
  Receipt Date: 20140507
  Transmission Date: 20141212
  Serious: Yes (Other)
  Sender: FDA-Public Use
  Company Number: US-GILEAD-2014-0092857

PATIENT
  Sex: Male
  Weight: 70.3 kg

DRUGS (14)
  1. LETAIRIS [Suspect]
     Indication: PULMONARY HYPERTENSION
     Dosage: 10 MG, QD
     Route: 048
     Dates: start: 20140116
  2. LETAIRIS [Suspect]
     Dosage: 5 MG, QD
     Route: 048
     Dates: start: 20101213
  3. REVATIO [Concomitant]
  4. BENICAR [Concomitant]
  5. TYVASO [Concomitant]
  6. METHADONE [Concomitant]
  7. METHOTREXATE [Concomitant]
  8. PREDNISONE [Concomitant]
  9. FOLIC ACID [Concomitant]
  10. NEXIUM                             /01479302/ [Concomitant]
  11. WELLBUTRIN [Concomitant]
  12. FERROUS SULFATE [Concomitant]
  13. SYMBICORT [Concomitant]
  14. NYSTATIN [Concomitant]

REACTIONS (3)
  - Pulmonary fibrosis [Unknown]
  - Dyspnoea [Unknown]
  - Fatigue [Unknown]
